FAERS Safety Report 6114308-5 (Version None)
Quarter: 2009Q1

REPORT INFORMATION
  Report Type: 
  Country: None (occurrence: None)
  Receive Date: 20090312
  Receipt Date: 20081222
  Transmission Date: 20090719
  Serious: No
  Sender: FDA-Public Use
  Company Number: US-ABBOTT-08P-163-0494236-00

PATIENT
  Sex: Male

DRUGS (6)
  1. DEPAKOTE [Suspect]
     Indication: CONVULSION
     Dosage: UNKNOWN DOSAGE
     Dates: start: 20050101, end: 20071201
  2. DEPAKOTE ER [Suspect]
     Indication: CONVULSION
     Dosage: 500 MILLIGRAMS IN AM; 500 MILLIGRAMS IN AFTERNOON; 500 MILLIGRAMS IN EVENING
     Route: 048
     Dates: start: 20071201, end: 20081120
  3. DEPAKOTE ER [Suspect]
     Dosage: 500 MILLIGRAMS IN AM; 250 MILLIGRAMS IN AFTERNOON; 500 MILLIGRAMS IN EVENING
     Route: 048
     Dates: start: 20081120
  4. ZONEGRAN [Concomitant]
     Indication: DRUG USE FOR UNKNOWN INDICATION
  5. POLYCITRA [Concomitant]
     Indication: DRUG USE FOR UNKNOWN INDICATION
  6. NAMENDA [Concomitant]
     Indication: DRUG USE FOR UNKNOWN INDICATION

REACTIONS (2)
  - ANTICONVULSANT DRUG LEVEL INCREASED [None]
  - PLATELET COUNT DECREASED [None]
